FAERS Safety Report 20779186 (Version 1)
Quarter: 2022Q2

REPORT INFORMATION
  Report Type: Spontaneous
  Country: AU (occurrence: None)
  Receive Date: 20220503
  Receipt Date: 20220503
  Transmission Date: 20220720
  Serious: Yes (Hospitalization, Other)
  Sender: FDA-Public Use
  Company Number: AU-Fresenius Kabi-FK202205029

PATIENT
  Age: 14 Year
  Sex: Female

DRUGS (2)
  1. ROPIVACAINE [Suspect]
     Active Substance: ROPIVACAINE
     Indication: Epidural anaesthesia
     Dosage: BOLUS WITH HOURLY BOLUSES REPEATED THROUGHOUT THE OPERATION
  2. LEVOBUPIVACAINE [Suspect]
     Active Substance: LEVOBUPIVACAINE
     Indication: Epidural anaesthesia
     Dosage: INFUSION

REACTIONS (2)
  - Desmoid tumour [Recovering/Resolving]
  - Muscle necrosis [Recovering/Resolving]
